FAERS Safety Report 6706027-9 (Version None)
Quarter: 2010Q2

REPORT INFORMATION
  Report Type: 
  Country: None (occurrence: None)
  Receive Date: 20100423
  Receipt Date: 20100217
  Transmission Date: 20101027
  Serious: No
  Sender: FDA-Public Use
  Company Number: ALL1-2010-00196

PATIENT
  Age: 57 Year
  Sex: Female

DRUGS (5)
  1. VYVANSE [Suspect]
     Indication: ATTENTION DEFICIT/HYPERACTIVITY DISORDER
     Dosage: 70 MG, 1X/DAY:QD, ORAL : 40 MG, 1X/DAY:QD, ORAL
     Route: 048
     Dates: start: 20091201, end: 20100114
  2. VYVANSE [Suspect]
     Indication: ATTENTION DEFICIT/HYPERACTIVITY DISORDER
     Dosage: 70 MG, 1X/DAY:QD, ORAL : 40 MG, 1X/DAY:QD, ORAL
     Route: 048
     Dates: start: 20100101
  3. AMBIEN [Concomitant]
  4. WELLBUTRIN XL [Concomitant]
  5. CELEXA [Concomitant]

REACTIONS (2)
  - HYPERTENSION [None]
  - OCULAR VASCULAR DISORDER [None]
